FAERS Safety Report 17698255 (Version 6)
Quarter: 2022Q2

REPORT INFORMATION
  Report Type: Spontaneous
  Country: US (occurrence: US)
  Receive Date: 20200423
  Receipt Date: 20220509
  Transmission Date: 20220721
  Serious: No
  Sender: FDA-Public Use
  Company Number: US-PFIZER INC-2018110541

PATIENT
  Age: 85 Year
  Sex: Female
  Weight: 61.23 kg

DRUGS (2)
  1. XELJANZ XR [Suspect]
     Active Substance: TOFACITINIB CITRATE
     Indication: Rheumatoid arthritis
     Dosage: 11 MG, 1X/DAY
     Route: 048
     Dates: start: 2019
  2. XELJANZ XR [Suspect]
     Active Substance: TOFACITINIB CITRATE
     Dosage: 11 MG, 1X/DAY
     Route: 048
     Dates: start: 2020

REACTIONS (6)
  - Hand deformity [Unknown]
  - Arthralgia [Unknown]
  - Contusion [Not Recovered/Not Resolved]
  - Skin discolouration [Not Recovered/Not Resolved]
  - Abdominal discomfort [Unknown]
  - Body height decreased [Unknown]

NARRATIVE: CASE EVENT DATE: 20190101
